FAERS Safety Report 8928767 (Version 1)
Quarter: 2012Q4

REPORT INFORMATION
  Report Type: Spontaneous
  Country: US (occurrence: None)
  Receive Date: 20121120
  Receipt Date: 20121120
  Transmission Date: 20130627
  Serious: Yes (Other)
  Sender: FDA-Public Use
  Company Number: 2012AP003894

PATIENT
  Sex: Female

DRUGS (2)
  1. ALENDRONATE SODIUM [Suspect]
     Indication: OSTEOPOROSIS
     Dates: start: 200812, end: 20101129
  2. ALENDRONATE SODIUM [Suspect]
     Indication: OSTEOPOROSIS
     Dates: start: 1990, end: 20080818

REACTIONS (10)
  - Multiple injuries [None]
  - Femur fracture [None]
  - Bone density decreased [None]
  - Low turnover osteopathy [None]
  - Pain [None]
  - Mental impairment [None]
  - Anxiety [None]
  - Anhedonia [None]
  - Fear of disease [None]
  - Emotional distress [None]
